FAERS Safety Report 4509517-2 (Version None)
Quarter: 2004Q4

REPORT INFORMATION
  Report Type: 
  Country: None (occurrence: None)
  Receive Date: 20041119
  Receipt Date: 20041027
  Transmission Date: 20050328
  Serious: Yes (Hospitalization)
  Sender: FDA-Public Use
  Company Number: USA041080269

PATIENT
  Age: 42 Year
  Sex: Female
  Weight: 70 kg

DRUGS (5)
  1. ALIMTA [Suspect]
     Indication: PERICARDIAL MESOTHELIOMA MALIGNANT LOCALISED
     Dosage: 875 MG
     Dates: start: 20040929
  2. CARBOPLATIN [Concomitant]
  3. FOLIC ACID [Concomitant]
  4. VITAMIN B-12 [Concomitant]
  5. DECADRON [Concomitant]

REACTIONS (1)
  - STOMATITIS [None]
